FAERS Safety Report 5159173-8 (Version None)
Quarter: 2006Q4

REPORT INFORMATION
  Report Type: 
  Country: None (occurrence: None)
  Receive Date: 20061120
  Receipt Date: 20061103
  Transmission Date: 20070319
  Serious: Yes (Hospitalization)
  Sender: FDA-Public Use
  Company Number: 231349

PATIENT
  Age: 57 Year
  Sex: Male

DRUGS (2)
  1. EFALIZUMAB(EFALIZUMAB) PWDR + SOLVENT, INJECTION SOLN, 125MG [Suspect]
     Indication: PSORIASIS
     Dosage: 1 MG/KG, 1/WEEK, SUBCUTANEOUS
     Route: 058
     Dates: start: 20051109, end: 20060929
  2. NIFEDIPINE [Concomitant]

REACTIONS (7)
  - ARTHRALGIA [None]
  - BLOOD CULTURE POSITIVE [None]
  - ECZEMA [None]
  - ERYTHRODERMIC PSORIASIS [None]
  - JOINT SWELLING [None]
  - PUSTULAR PSORIASIS [None]
  - STAPHYLOCOCCAL INFECTION [None]
